FAERS Safety Report 10200921 (Version 2)
Quarter: 2014Q2

REPORT INFORMATION
  Report Type: Spontaneous
  Country: KR (occurrence: KR)
  Receive Date: 20140528
  Receipt Date: 20140528
  Transmission Date: 20141212
  Serious: Yes (Other)
  Sender: FDA-Public Use
  Company Number: KR-009507513-1101KOR00043

PATIENT
  Sex: Female

DRUGS (1)
  1. PROPECIA [Suspect]

REACTIONS (2)
  - Abortion [Recovered/Resolved]
  - Exposure via body fluid [Recovered/Resolved]
